FAERS Safety Report 12281219 (Version 2)
Quarter: 2016Q2

REPORT INFORMATION
  Report Type: Report from Study
  Country: US (occurrence: US)
  Receive Date: 20160419
  Receipt Date: 20160623
  Transmission Date: 20160815
  Serious: Yes (Death, Other)
  Sender: FDA-Public Use
  Company Number: PHEH2016US009423

PATIENT
  Sex: Male
  Weight: 93 kg

DRUGS (3)
  1. EPINEPHRINE. [Concomitant]
     Active Substance: EPINEPHRINE
     Indication: PRODUCT USED FOR UNKNOWN INDICATION
     Route: 065
  2. IMURAN [Concomitant]
     Active Substance: AZATHIOPRINE
     Indication: IMMUNOSUPPRESSANT DRUG THERAPY
     Route: 065
  3. SANDIMMUNE [Suspect]
     Active Substance: CYCLOSPORINE
     Indication: IMMUNOSUPPRESSANT DRUG THERAPY
     Route: 065

REACTIONS (10)
  - Death [Fatal]
  - Pulmonary embolism [Unknown]
  - Ventricular fibrillation [Unknown]
  - Asthenia [Unknown]
  - Ventricular tachycardia [Unknown]
  - Acute myocardial infarction [Unknown]
  - Arrhythmia [Unknown]
  - Respiratory failure [Unknown]
  - Blood pressure decreased [Unknown]
  - Cardiac arrest [Unknown]
